FAERS Safety Report 6372045-6 (Version None)
Quarter: 2009Q3

REPORT INFORMATION
  Report Type: 
  Country: None (occurrence: None)
  Receive Date: 20090923
  Receipt Date: 20090914
  Transmission Date: 20100115
  Serious: Yes (Hospitalization)
  Sender: FDA-Public Use
  Company Number: FR-MERCK-0909FRA00034

PATIENT
  Age: 75 Year
  Sex: Female

DRUGS (8)
  1. PRIMAXIN [Suspect]
     Indication: PSEUDOMONAS INFECTION
     Route: 042
     Dates: start: 20090721, end: 20090806
  2. FUROSEMIDE [Suspect]
     Route: 048
     Dates: start: 20090727, end: 20090807
  3. VANCOMYCIN [Suspect]
     Indication: PSEUDOMONAS INFECTION
     Route: 042
     Dates: start: 20090721, end: 20090805
  4. ECONAZOLE NITRATE [Suspect]
     Indication: SKIN CANDIDA
     Route: 061
     Dates: start: 20090722, end: 20090813
  5. FLUCONAZOLE [Suspect]
     Indication: SKIN CANDIDA
     Route: 048
     Dates: start: 20090731, end: 20090806
  6. ACETAMINOPHEN [Concomitant]
     Route: 065
  7. PREGABALIN [Concomitant]
     Route: 048
     Dates: start: 20090802
  8. TRAMADOL HYDROCHLORIDE [Concomitant]
     Route: 065
     Dates: start: 20090803, end: 20090801

REACTIONS (1)
  - BONE MARROW FAILURE [None]
